FAERS Safety Report 16973121 (Version 1)
Quarter: 2019Q4

REPORT INFORMATION
  Report Type: Spontaneous
  Country: US (occurrence: US)
  Receive Date: 20191030
  Receipt Date: 20191030
  Transmission Date: 20200122
  Serious: No
  Sender: FDA-Public Use
  Company Number: US-TEVA-2019-US-1129090

PATIENT
  Sex: Male

DRUGS (1)
  1. SOLIFENACIN SUCCINATE TEVA [Suspect]
     Active Substance: SOLIFENACIN SUCCINATE
     Dosage: DOSE STRENGTH: 10
     Route: 065

REACTIONS (4)
  - Headache [Not Recovered/Not Resolved]
  - Dizziness [Not Recovered/Not Resolved]
  - Hypertension [Recovered/Resolved]
  - Product substitution issue [Unknown]
